FAERS Safety Report 7677433-3 (Version None)
Quarter: 2011Q3

REPORT INFORMATION
  Report Type: 
  Country: None (occurrence: None)
  Receive Date: 20110811
  Receipt Date: 20101001
  Transmission Date: 20111222
  Serious: No
  Sender: FDA-Public Use
  Company Number: US-BRISTOL-MYERS SQUIBB COMPANY-15315138

PATIENT

DRUGS (3)
  1. RALTEGRAVIR [Suspect]
     Indication: HIV INFECTION
  2. REYATAZ [Suspect]
     Indication: HIV INFECTION
  3. EPZICOM [Suspect]
     Indication: HIV INFECTION

REACTIONS (1)
  - CACHEXIA [None]
